FAERS Safety Report 7077511-6 (Version None)
Quarter: 2010Q4

REPORT INFORMATION
  Report Type: 
  Country: None (occurrence: None)
  Receive Date: 20101021
  Receipt Date: 20101007
  Transmission Date: 20110411
  Serious: Yes (Death, Other)
  Sender: FDA-Public Use
  Company Number: 2010SP019200

PATIENT
  Age: 68 Year
  Sex: Male
  Weight: 75 kg

DRUGS (8)
  1. REBETOL [Suspect]
     Indication: HEPATITIS C
     Dosage: 800 MG; QD; PO
     Route: 048
     Dates: start: 20100308, end: 20100316
  2. INTERFERON [Suspect]
     Indication: HEPATITIS C
     Dosage: 6 MIU; QD; IV
     Route: 042
     Dates: start: 20100308, end: 20100315
  3. FUTHAN (NAFAMOSTAT MESILATE) [Suspect]
     Indication: PLASMAPHERESIS
     Dosage: 100 MG;
     Dates: start: 20100308, end: 20100315
  4. HEPARIN SODIUM [Suspect]
     Indication: PLASMAPHERESIS
     Dosage: 5 ML; QD;
     Dates: start: 20100308, end: 20100315
  5. CYANOCOBALAMIN [Concomitant]
  6. URIEF (SILODOSIN) [Concomitant]
  7. AMLODIPINE [Concomitant]
  8. KEISHIBUKURYOUGAN [Concomitant]

REACTIONS (5)
  - CARDIO-RESPIRATORY ARREST [None]
  - FEELING ABNORMAL [None]
  - LEFT VENTRICULAR FAILURE [None]
  - LOSS OF CONSCIOUSNESS [None]
  - PULMONARY CONGESTION [None]
